FAERS Safety Report 7873668-5 (Version None)
Quarter: 2011Q4

REPORT INFORMATION
  Report Type: 
  Country: None (occurrence: None)
  Receive Date: 20111030
  Receipt Date: 20110506
  Transmission Date: 20120403
  Serious: Yes (Hospitalization)
  Sender: FDA-Public Use
  Company Number: US-AMGEN-USASP2011006315

PATIENT
  Age: 68 Year
  Sex: Female

DRUGS (3)
  1. ENBREL [Suspect]
     Indication: PSORIATIC ARTHROPATHY
     Dosage: UNK
     Dates: start: 20060830
  2. ENBREL [Suspect]
     Indication: PSORIASIS
  3. ENBREL [Suspect]

REACTIONS (6)
  - HERPES ZOSTER [None]
  - PSORIATIC ARTHROPATHY [None]
  - LUNG INFECTION [None]
  - WOUND INFECTION [None]
  - ARTHRALGIA [None]
  - PSORIASIS [None]
